FAERS Safety Report 15292712 (Version 1)
Quarter: 2018Q3

REPORT INFORMATION
  Report Type: Spontaneous
  Country: CA (occurrence: CA)
  Receive Date: 20180819
  Receipt Date: 20180819
  Transmission Date: 20181010
  Serious: Yes (Hospitalization)
  Sender: FDA-Public Use
  Company Number: CA-TOLMAR, INC.-TOLG20180459

PATIENT
  Age: 13 Year
  Sex: Male

DRUGS (2)
  1. ISOTRETINOIN. [Suspect]
     Active Substance: ISOTRETINOIN
     Indication: ACNE CONGLOBATA
     Dosage: 0.5 MG/KG
     Route: 048
  2. ATRIDOX [Suspect]
     Active Substance: DOXYCYCLINE HYCLATE
     Indication: ACNE CONGLOBATA
     Dosage: 100 MG
     Route: 048

REACTIONS (12)
  - Myalgia [Recovering/Resolving]
  - Acne [Recovering/Resolving]
  - Leukocytosis [Recovering/Resolving]
  - Transaminases increased [Recovering/Resolving]
  - Neutrophilic dermatosis [Recovering/Resolving]
  - Skin ulcer [Recovering/Resolving]
  - Scab [Recovering/Resolving]
  - Pyrexia [Recovering/Resolving]
  - Rash papular [Recovering/Resolving]
  - Deformity [Recovering/Resolving]
  - Skin oedema [Recovering/Resolving]
  - Arthralgia [Recovering/Resolving]
